FAERS Safety Report 17976897 (Version 2)
Quarter: 2020Q4

REPORT INFORMATION
  Report Type: Spontaneous
  Country: US (occurrence: US)
  Receive Date: 20200702
  Receipt Date: 20201105
  Transmission Date: 20210113
  Serious: Yes (Other)
  Sender: FDA-Public Use
  Company Number: US-ASTRAZENECA-2020SE83335

PATIENT
  Age: 646 Month
  Sex: Male
  Weight: 104.3 kg

DRUGS (66)
  1. NEXIUM [Suspect]
     Active Substance: ESOMEPRAZOLE MAGNESIUM
     Indication: GASTROOESOPHAGEAL REFLUX DISEASE
     Route: 048
     Dates: start: 20100621
  2. AMLODIPINE [Concomitant]
     Active Substance: AMLODIPINE BESYLATE
     Indication: HYPERTENSION
  3. RAMIPRIL. [Concomitant]
     Active Substance: RAMIPRIL
  4. MUPIROCIN. [Concomitant]
     Active Substance: MUPIROCIN
  5. RAMIPRIL. [Concomitant]
     Active Substance: RAMIPRIL
  6. VICTOZA [Concomitant]
     Active Substance: LIRAGLUTIDE
  7. TRESIBA [Concomitant]
     Active Substance: INSULIN DEGLUDEC
  8. AZELASTINE. [Concomitant]
     Active Substance: AZELASTINE HYDROCHLORIDE
  9. BESIVANCE [Concomitant]
     Active Substance: BESIFLOXACIN
  10. NEXIUM [Suspect]
     Active Substance: ESOMEPRAZOLE MAGNESIUM
     Indication: GASTROOESOPHAGEAL REFLUX DISEASE
     Route: 048
     Dates: start: 201001, end: 201201
  11. NEXIUM [Suspect]
     Active Substance: ESOMEPRAZOLE MAGNESIUM
     Indication: GASTROOESOPHAGEAL REFLUX DISEASE
     Route: 048
     Dates: start: 201306, end: 201502
  12. BYSTOLIC [Concomitant]
     Active Substance: NEBIVOLOL HYDROCHLORIDE
     Indication: HYPERTENSION
  13. CIPROFLOXACIN. [Concomitant]
     Active Substance: CIPROFLOXACIN
  14. SILVER SULFADIAZINE. [Concomitant]
     Active Substance: SILVER SULFADIAZINE
  15. VYTORIN [Concomitant]
     Active Substance: EZETIMIBE\SIMVASTATIN
  16. METANX [Concomitant]
     Active Substance: LEVOMEFOLATE CALCIUM\METHYLCOBALAMIN\PYRIDOXAL PHOSPHATE ANHYDROUS
  17. FOLIC ACID. [Concomitant]
     Active Substance: FOLIC ACID
  18. HYDROCODONE [Concomitant]
     Active Substance: HYDROCODONE
  19. METOCLOPRAMIDE. [Concomitant]
     Active Substance: METOCLOPRAMIDE
  20. NEXIUM [Suspect]
     Active Substance: ESOMEPRAZOLE MAGNESIUM
     Indication: GASTROOESOPHAGEAL REFLUX DISEASE
     Route: 048
     Dates: start: 2010, end: 2015
  21. NEXIUM [Suspect]
     Active Substance: ESOMEPRAZOLE MAGNESIUM
     Indication: GASTROOESOPHAGEAL REFLUX DISEASE
     Route: 065
     Dates: start: 201502, end: 201510
  22. NEXIUM [Suspect]
     Active Substance: ESOMEPRAZOLE MAGNESIUM
     Indication: GASTROOESOPHAGEAL REFLUX DISEASE
     Route: 065
     Dates: start: 201502, end: 201510
  23. CLINDAMYCIN. [Concomitant]
     Active Substance: CLINDAMYCIN
  24. GABAPENTIN. [Concomitant]
     Active Substance: GABAPENTIN
  25. FLUTICASONE. [Concomitant]
     Active Substance: FLUTICASONE
  26. LEVOCETIRIZINE [Concomitant]
     Active Substance: LEVOCETIRIZINE
  27. METHOTREXATE. [Concomitant]
     Active Substance: METHOTREXATE
  28. NEXIUM [Suspect]
     Active Substance: ESOMEPRAZOLE MAGNESIUM
     Indication: GASTROOESOPHAGEAL REFLUX DISEASE
     Route: 048
     Dates: start: 201001, end: 201201
  29. ATORVASTATIN [Concomitant]
     Active Substance: ATORVASTATIN
     Indication: HYPERLIPIDAEMIA
  30. CARTIA [Concomitant]
  31. NOVOLOG [Concomitant]
     Active Substance: INSULIN ASPART
  32. BELSOMRA [Concomitant]
     Active Substance: SUVOREXANT
  33. CIALIS [Concomitant]
     Active Substance: TADALAFIL
  34. PREDNISONE. [Concomitant]
     Active Substance: PREDNISONE
  35. COLCHICINE. [Concomitant]
     Active Substance: COLCHICINE
  36. LOSARTAN. [Concomitant]
     Active Substance: LOSARTAN
  37. OMEGA-3 ACIDS [Concomitant]
     Active Substance: OMEGA-3 FATTY ACIDS
  38. FLUVIRIN NOS [Concomitant]
     Active Substance: INFLUENZA VIRUS VACCINE
  39. ALLOPURINOL. [Concomitant]
     Active Substance: ALLOPURINOL
  40. SULFASALAZINE. [Concomitant]
     Active Substance: SULFASALAZINE
  41. NEXIUM [Suspect]
     Active Substance: ESOMEPRAZOLE MAGNESIUM
     Indication: GASTROOESOPHAGEAL REFLUX DISEASE
     Route: 048
     Dates: start: 2010, end: 2015
  42. NEXIUM [Suspect]
     Active Substance: ESOMEPRAZOLE MAGNESIUM
     Indication: GASTROOESOPHAGEAL REFLUX DISEASE
     Route: 048
     Dates: start: 201306, end: 201502
  43. NEXIUM [Suspect]
     Active Substance: ESOMEPRAZOLE MAGNESIUM
     Indication: GASTROOESOPHAGEAL REFLUX DISEASE
     Route: 048
     Dates: start: 20100621
  44. NEXIUM 24HR [Suspect]
     Active Substance: ESOMEPRAZOLE MAGNESIUM
     Indication: GASTROOESOPHAGEAL REFLUX DISEASE
     Route: 048
     Dates: start: 2017, end: 2018
  45. JARDIANCE [Concomitant]
     Active Substance: EMPAGLIFLOZIN
     Indication: DIABETES MELLITUS
  46. TYLENOL [Concomitant]
     Active Substance: ACETAMINOPHEN
     Indication: PAIN
     Dates: start: 1990
  47. TUMS [Concomitant]
     Active Substance: CALCIUM CARBONATE
  48. DULOXETINE. [Concomitant]
     Active Substance: DULOXETINE
  49. METHOCARBAMOL. [Concomitant]
     Active Substance: METHOCARBAMOL
  50. FLUCONAZOLE. [Concomitant]
     Active Substance: FLUCONAZOLE
  51. SALICYLIC ACID. [Concomitant]
     Active Substance: SALICYLIC ACID
  52. DUREZOL [Concomitant]
     Active Substance: DIFLUPREDNATE
  53. LEFLUNOMIDE. [Concomitant]
     Active Substance: LEFLUNOMIDE
  54. NAFTIN [Concomitant]
     Active Substance: NAFTIFINE HYDROCHLORIDE
  55. NEXIUM 24HR [Suspect]
     Active Substance: ESOMEPRAZOLE MAGNESIUM
     Indication: GASTROOESOPHAGEAL REFLUX DISEASE
     Route: 048
     Dates: start: 2017, end: 2018
  56. DULOXETINE. [Concomitant]
     Active Substance: DULOXETINE
     Indication: DEPRESSION
  57. CICLOPIROX. [Concomitant]
     Active Substance: CICLOPIROX
  58. TERBINAFINE. [Concomitant]
     Active Substance: TERBINAFINE
  59. HUMIRA [Concomitant]
     Active Substance: ADALIMUMAB
  60. BOOSTRIX [Concomitant]
     Active Substance: TETANUS TOXOID, REDUCED DIPHTHERIA TOXOID AND ACELLULAR PERTUSSIS VACCINE, ADSORBED ANTIGENS
  61. ZOSTAVAX [Concomitant]
     Active Substance: VARICELLA-ZOSTER VIRUS STRAIN OKA/MERCK LIVE ANTIGEN
  62. MUPIROCIN. [Concomitant]
     Active Substance: MUPIROCIN
  63. DOXYCYCLINE. [Concomitant]
     Active Substance: DOXYCYCLINE
  64. VITAMIN D2 [Concomitant]
     Active Substance: ERGOCALCIFEROL
  65. VIGAMOX [Concomitant]
     Active Substance: MOXIFLOXACIN HYDROCHLORIDE
  66. FUROSEMIDE. [Concomitant]
     Active Substance: FUROSEMIDE

REACTIONS (3)
  - Diabetes mellitus [Not Recovered/Not Resolved]
  - Chronic kidney disease [Not Recovered/Not Resolved]
  - Hypertension [Not Recovered/Not Resolved]
